FAERS Safety Report 23980969 (Version 2)
Quarter: 2024Q3

REPORT INFORMATION
  Report Type: Report from Study
  Country: CA (occurrence: CA)
  Receive Date: 20240617
  Receipt Date: 20240715
  Transmission Date: 20241016
  Serious: No
  Sender: ABBVIE
  Company Number: CA-ABBVIE-5802276

PATIENT
  Sex: Male

DRUGS (1)
  1. SKYRIZI [Suspect]
     Active Substance: RISANKIZUMAB-RZAA
     Indication: Psoriasis
     Route: 058
     Dates: start: 20230812

REACTIONS (2)
  - Dermatitis atopic [Not Recovered/Not Resolved]
  - Insomnia [Unknown]
